FAERS Safety Report 13551061 (Version 2)
Quarter: 2017Q2

REPORT INFORMATION
  Report Type: Spontaneous
  Country: US (occurrence: US)
  Receive Date: 20170516
  Receipt Date: 20170606
  Transmission Date: 20170830
  Serious: Yes (Other)
  Sender: FDA-Public Use
  Company Number: US-BAYER-2017-091647

PATIENT
  Age: 32 Year
  Sex: Female
  Weight: 94.79 kg

DRUGS (1)
  1. MIRENA [Suspect]
     Active Substance: LEVONORGESTREL
     Indication: CONTRACEPTION
     Dosage: 20 MCG/24HR, CONT
     Route: 015
     Dates: start: 20160928, end: 20170428

REACTIONS (3)
  - Embedded device [Recovering/Resolving]
  - Genital haemorrhage [Recovering/Resolving]
  - Device difficult to use [None]

NARRATIVE: CASE EVENT DATE: 20160928
